FAERS Safety Report 5150903-8 (Version None)
Quarter: 2006Q4

REPORT INFORMATION
  Report Type: 
  Country: None (occurrence: None)
  Receive Date: 20061114
  Receipt Date: 20061110
  Transmission Date: 20070319
  Serious: Yes (Life-Threatening, Other)
  Sender: FDA-Public Use
  Company Number: GB-BOEHRINGER INGELHEIM PHARMACEUTICALS, INC.-2006-UK-04589UK

PATIENT
  Age: 43 Year
  Sex: Female
  Weight: 56 kg

DRUGS (3)
  1. VIRAMUNE [Suspect]
     Indication: RETROVIRAL INFECTION
     Route: 048
     Dates: start: 20060802, end: 20060929
  2. OLANZAPINE [Concomitant]
     Indication: MANIA
     Route: 048
     Dates: start: 20060728
  3. ZOPICLONE [Concomitant]
     Indication: INSOMNIA
     Dosage: AS NECESSARY
     Route: 048
     Dates: start: 20060601, end: 20060801

REACTIONS (5)
  - EYE PRURITUS [None]
  - HEPATIC ENZYME INCREASED [None]
  - INFLUENZA LIKE ILLNESS [None]
  - PYREXIA [None]
  - RHINORRHOEA [None]
